FAERS Safety Report 6894063-1 (Version None)
Quarter: 2010Q3

REPORT INFORMATION
  Report Type: 
  Country: None (occurrence: None)
  Receive Date: 20100802
  Receipt Date: 20100722
  Transmission Date: 20110219
  Serious: No
  Sender: FDA-Public Use
  Company Number: KR-JNJFOC-20100707435

PATIENT
  Age: 37 Year
  Sex: Female

DRUGS (3)
  1. DURAGESIC-100 [Suspect]
     Indication: PAIN MANAGEMENT
     Route: 062
  2. DURAGESIC-100 [Suspect]
     Dosage: HALF OF 12.5 UG/HR
     Route: 062
  3. MOTILIUM-M [Concomitant]
     Indication: ANTIEMETIC SUPPORTIVE CARE
     Dosage: THRICE DAILY
     Route: 048

REACTIONS (3)
  - DIZZINESS [None]
  - DRUG ADMINISTRATION ERROR [None]
  - VOMITING [None]
